FAERS Safety Report 6991498-3 (Version None)
Quarter: 2010Q3

REPORT INFORMATION
  Report Type: 
  Country: None (occurrence: None)
  Receive Date: 20100917
  Receipt Date: 20100909
  Transmission Date: 20110219
  Serious: Yes (Hospitalization, Other)
  Sender: FDA-Public Use
  Company Number: US-BIOGENIDEC-2010BI007964

PATIENT
  Age: 47 Year
  Sex: Male
  Weight: 77 kg

DRUGS (7)
  1. TYSABRI [Suspect]
     Indication: MULTIPLE SCLEROSIS
     Route: 042
     Dates: start: 20080328, end: 20091209
  2. DITROPAN [Concomitant]
  3. LEVITRA [Concomitant]
  4. IMODIUM [Concomitant]
  5. IBUPROFEN [Concomitant]
     Dates: end: 20100228
  6. CIALIS [Concomitant]
  7. PROVIGIL [Concomitant]

REACTIONS (6)
  - ABDOMINAL ABSCESS [None]
  - COLON CANCER [None]
  - DIARRHOEA [None]
  - METASTASES TO LIVER [None]
  - NAUSEA [None]
  - VOMITING [None]
